FAERS Safety Report 9490438 (Version 3)
Quarter: 2013Q4

REPORT INFORMATION
  Report Type: Spontaneous
  Country: US (occurrence: None)
  Receive Date: 20130826
  Receipt Date: 20131016
  Transmission Date: 20140711
  Serious: Yes (Other)
  Sender: FDA-Public Use
  Company Number: ACO_37577_2013

PATIENT
  Age: 50 Year
  Sex: Female
  Weight: 52.2 kg

DRUGS (15)
  1. AMPYRA [Suspect]
     Indication: GAIT DISTURBANCE
     Route: 048
     Dates: start: 2011
  2. REBIF (INTERFERON BETA-1A) [Concomitant]
  3. BACLOFEN (BACLOFEN) [Concomitant]
  4. WELLBUTRIN (BUPROPION HYDROCHLORIDE) [Concomitant]
  5. NEURONTIN (GABAPENTIN) [Concomitant]
  6. ALBUTEROL (SALBUTAMOL) [Concomitant]
  7. NORVASC (AMLODIPINE BESILATE) [Concomitant]
  8. PROTONIX (PANTOPRAZOLE SODIUM SESQUIHYDRATE) [Concomitant]
  9. MACROBID (NITROFURANTOIN) [Concomitant]
  10. KLONOPIN (CLONAZEPAM) [Concomitant]
  11. RITALIN (METHYLPHENIDATE HYDROCHLORIDE) [Concomitant]
  12. DURAGESIC (FENTANYL) [Concomitant]
  13. HYDROCODONE W/APAP (HYDROCODONE BITARTRATE, PARCETAMOL) [Concomitant]
  14. VITAMIN D (ERGOCALCIFEROL) [Concomitant]
  15. WOMENS DAILY [Concomitant]

REACTIONS (3)
  - Kidney infection [None]
  - Vitamin D decreased [None]
  - Muscle spasms [None]
